FAERS Safety Report 8919556 (Version 3)
Quarter: 2013Q3

REPORT INFORMATION
  Report Type: Spontaneous
  Country: US (occurrence: US)
  Receive Date: 20121121
  Receipt Date: 20130826
  Transmission Date: 20140515
  Serious: Yes (Hospitalization, Other)
  Sender: FDA-Public Use
  Company Number: US-MERCK-1211USA007596

PATIENT
  Sex: Female

DRUGS (10)
  1. FOSAMAX [Suspect]
     Indication: OSTEOPOROSIS
     Dosage: 10 MG, UNK
     Route: 048
     Dates: start: 199510, end: 200110
  2. FOSAMAX [Suspect]
     Dosage: 70 MG, UNK
     Route: 048
     Dates: start: 200110, end: 200505
  3. FOSAMAX PLUS D [Suspect]
     Indication: OSTEOPOROSIS
     Dosage: 70/2800 MG/IU, QW
     Route: 048
     Dates: start: 200505, end: 200912
  4. VITAMINS (UNSPECIFIED) [Concomitant]
     Dosage: 1 DF, QD
     Dates: start: 2002
  5. VITAMIN D (UNSPECIFIED) [Concomitant]
     Dosage: 2500-5000MG
     Dates: start: 2002
  6. CALCIUM D3 [Concomitant]
     Dosage: 600 MG, UNK
     Dates: start: 2002
  7. UBIDECARENONE [Concomitant]
     Dosage: 100-200MG, UNK
     Dates: start: 2002
  8. FLAXSEED [Concomitant]
     Dosage: 1400 MG, UNK
     Dates: start: 2002
  9. OMEGA-3 MARINE TRIGLYCERIDES [Concomitant]
     Dosage: 1000 MG, UNK
     Dates: start: 2002
  10. PRILOSEC [Concomitant]
     Dosage: UNK
     Dates: start: 2007

REACTIONS (8)
  - Femur fracture [Unknown]
  - Intramedullary rod insertion [Unknown]
  - Wrist fracture [Unknown]
  - Foot fracture [Unknown]
  - Diabetes mellitus [Unknown]
  - Hypothyroidism [Unknown]
  - Hypertension [Unknown]
  - Blood cholesterol increased [Unknown]
